FAERS Safety Report 19670289 (Version 1)
Quarter: 2021Q3

REPORT INFORMATION
  Report Type: Spontaneous
  Country: US (occurrence: US)
  Receive Date: 20210806
  Receipt Date: 20210806
  Transmission Date: 20211014
  Serious: Yes (Hospitalization)
  Sender: FDA-Public Use
  Company Number: US-SAOL THERAPEUTICS-2020SAO00420

PATIENT
  Age: 29 Year
  Sex: Male

DRUGS (1)
  1. LIORESAL [Suspect]
     Active Substance: BACLOFEN
     Indication: STIFF PERSON SYNDROME
     Dosage: 344 ?G, \DAY
     Route: 037
     Dates: end: 202009

REACTIONS (3)
  - Device dislocation [Recovered/Resolved]
  - Implant site infection [Recovered/Resolved]
  - Device physical property issue [Recovered/Resolved]

NARRATIVE: CASE EVENT DATE: 20200911
